FAERS Safety Report 12139794 (Version 1)
Quarter: 2016Q1

REPORT INFORMATION
  Report Type: Report from Study
  Country: JP (occurrence: JP)
  Receive Date: 20160303
  Receipt Date: 20160303
  Transmission Date: 20160526
  Serious: Yes (Other)
  Sender: FDA-Public Use
  Company Number: PHJP2015JP012610

PATIENT
  Age: 61 Year
  Sex: Male

DRUGS (1)
  1. SEEBRI BREEZHALER CAPSUL [Suspect]
     Active Substance: GLYCOPYRROLATE
     Indication: CHRONIC OBSTRUCTIVE PULMONARY DISEASE
     Dosage: 50 UG, QD
     Route: 055
     Dates: start: 20140718

REACTIONS (4)
  - Chronic obstructive pulmonary disease [Recovering/Resolving]
  - Sputum increased [Unknown]
  - Hypertension [Not Recovered/Not Resolved]
  - Dyspnoea [Unknown]

NARRATIVE: CASE EVENT DATE: 20150710
